FAERS Safety Report 9152788 (Version 1)
Quarter: 2013Q1

REPORT INFORMATION
  Report Type: Spontaneous
  Country: BR (occurrence: BR)
  Receive Date: 20130111
  Receipt Date: 20130111
  Transmission Date: 20140127
  Serious: Yes (Hospitalization, Other)
  Sender: FDA-Public Use
  Company Number: BR-PFIZER INC-2013008406

PATIENT
  Sex: Female

DRUGS (1)
  1. DALACIN C [Suspect]
     Dosage: 300 MG, UNK

REACTIONS (4)
  - Prerenal failure [Unknown]
  - Colitis [Unknown]
  - Gastroenteritis [Unknown]
  - Dehydration [Unknown]
